FAERS Safety Report 5621815-8 (Version None)
Quarter: 2008Q1

REPORT INFORMATION
  Report Type: 
  Country: None (occurrence: None)
  Receive Date: 20080211
  Receipt Date: 20080201
  Transmission Date: 20080703
  Serious: Yes (Hospitalization, Other)
  Sender: FDA-Public Use
  Company Number: PHHY2008CA00953

PATIENT
  Age: 51 Year
  Sex: Male

DRUGS (2)
  1. CLOZARIL [Suspect]
     Indication: SCHIZOPHRENIA
     Dosage: 100 MG AM, 300 MG HS (SUPPER)
     Route: 048
     Dates: start: 19960123
  2. CLONAZEPAM [Concomitant]
     Dosage: 0.5 MG, QID

REACTIONS (6)
  - ASPIRATION [None]
  - CACHEXIA [None]
  - LUNG ABSCESS [None]
  - PALLOR [None]
  - PULMONARY MASS [None]
  - WEIGHT DECREASED [None]
